FAERS Safety Report 7575383-4 (Version None)
Quarter: 2011Q2

REPORT INFORMATION
  Report Type: 
  Country: None (occurrence: None)
  Receive Date: 20110627
  Receipt Date: 20110610
  Transmission Date: 20111010
  Serious: Yes (Hospitalization)
  Sender: FDA-Public Use
  Company Number: JP-AMGEN-JPNCT2011029293

PATIENT
  Age: 52 Year
  Sex: Female
  Weight: 53 kg

DRUGS (9)
  1. PURSENNID [Concomitant]
     Indication: CONSTIPATION PROPHYLAXIS
     Route: 048
     Dates: start: 20100217
  2. ALDACTONE [Concomitant]
     Indication: OEDEMA
     Route: 048
     Dates: start: 20100120
  3. LASIX [Concomitant]
     Indication: OEDEMA
     Route: 048
     Dates: start: 20100217
  4. OXINORM [Concomitant]
     Indication: PAIN
     Dosage: AS NEEDED
     Route: 048
     Dates: start: 20101115
  5. DENOSUMAB [Suspect]
     Indication: METASTASES TO BONE
     Dosage: 120 MG, Q4WK
     Route: 058
     Dates: start: 20090729
  6. CALCICHEW [Concomitant]
     Indication: HYPOCALCAEMIA
     Route: 048
     Dates: start: 20061122
  7. SELBEX [Concomitant]
     Indication: GASTRITIS PROPHYLAXIS
     Dosage: AS NEEDED
     Route: 048
     Dates: start: 20090306
  8. TRAVELMIN [Concomitant]
     Indication: PROPHYLAXIS OF NAUSEA AND VOMITING
     Dosage: UNK
     Route: 048
     Dates: start: 20101117
  9. PASETOCIN [Concomitant]
     Indication: STOMATITIS
     Route: 048
     Dates: start: 20110512

REACTIONS (1)
  - METASTASES TO MENINGES [None]
